FAERS Safety Report 6794846-2 (Version None)
Quarter: 2010Q2

REPORT INFORMATION
  Report Type: 
  Country: None (occurrence: None)
  Receive Date: 20100625
  Receipt Date: 20100616
  Transmission Date: 20101027
  Serious: Yes (Death)
  Sender: FDA-Public Use
  Company Number: FR-SANOFI-AVENTIS-2010SA034622

PATIENT
  Age: 83 Year
  Sex: Female

DRUGS (14)
  1. KARDEGIC [Interacting]
     Route: 048
     Dates: end: 20100125
  2. LOVENOX [Suspect]
     Indication: PULMONARY EMBOLISM
     Route: 058
     Dates: start: 20091201, end: 20100125
  3. BIPROFENID [Interacting]
     Route: 048
     Dates: end: 20100125
  4. ESOMEPRAZOLE [Concomitant]
     Route: 048
     Dates: end: 20100125
  5. ATARAX [Concomitant]
     Route: 048
     Dates: end: 20100125
  6. DURAGESIC-100 [Concomitant]
     Indication: PAIN
     Dosage: 1 PATCH ALL 72 HOURS (50 ?MOL/HOUR) ( 8.4 MG/21 CM2)= 1DF FOR 72 HOURS.
     Route: 062
     Dates: end: 20100125
  7. XANAX [Concomitant]
     Route: 048
     Dates: end: 20100125
  8. ALENDRONIC ACID [Concomitant]
     Route: 048
     Dates: end: 20100125
  9. CONTRAMAL [Concomitant]
     Indication: PAIN
     Route: 048
     Dates: end: 20100125
  10. PRIMPERAN TAB [Concomitant]
     Route: 048
     Dates: end: 20100125
  11. PULMICORT [Concomitant]
     Route: 055
  12. VENTOLIN [Concomitant]
     Route: 065
  13. CALCIUM CARBONATE [Concomitant]
     Route: 065
  14. SPASFON [Concomitant]
     Route: 065

REACTIONS (6)
  - ANAEMIA [None]
  - CIRCULATORY COLLAPSE [None]
  - DRUG INTERACTION [None]
  - MUSCLE HAEMORRHAGE [None]
  - OVERDOSE [None]
  - THROMBOCYTOPENIA [None]
